FAERS Safety Report 15041310 (Version 1)
Quarter: 2018Q2

REPORT INFORMATION
  Report Type: Spontaneous
  Country: US (occurrence: US)
  Receive Date: 20180621
  Receipt Date: 20180621
  Transmission Date: 20180711
  Serious: Yes (Other)
  Sender: FDA-Public Use
  Company Number: US-TESARO INC.-TS50-00327-2018USA

PATIENT
  Sex: Female

DRUGS (3)
  1. NIRAPARIB TOSYLATE MONOHYDRATE [Concomitant]
     Indication: OVARIAN CANCER
     Dosage: 100 MG, QPM WITHOUT FOOD
     Route: 065
  2. VARUBI [Suspect]
     Active Substance: ROLAPITANT
     Indication: NAUSEA
     Route: 048
     Dates: start: 201610
  3. VARUBI [Suspect]
     Active Substance: ROLAPITANT
     Indication: VOMITING

REACTIONS (13)
  - Thyroid hormones decreased [Not Recovered/Not Resolved]
  - Nausea [Not Recovered/Not Resolved]
  - Pyrexia [Recovered/Resolved]
  - Feeling abnormal [Not Recovered/Not Resolved]
  - Headache [Not Recovered/Not Resolved]
  - Fluid retention [Recovered/Resolved]
  - Blood disorder [Recovered/Resolved]
  - Fatigue [Not Recovered/Not Resolved]
  - Decreased appetite [Not Recovered/Not Resolved]
  - Liver disorder [Not Recovered/Not Resolved]
  - Tumour marker increased [Not Recovered/Not Resolved]
  - Bedridden [Not Recovered/Not Resolved]
  - Full blood count decreased [Not Recovered/Not Resolved]
